FAERS Safety Report 4368848-X (Version None)
Quarter: 2004Q2

REPORT INFORMATION
  Report Type: 
  Country: None (occurrence: None)
  Receive Date: 20040525
  Receipt Date: 20040513
  Transmission Date: 20050107
  Serious: Yes (Death)
  Sender: FDA-Public Use
  Company Number: US-JNJFOC-20040502959

PATIENT
  Age: 71 Year
  Sex: Female

DRUGS (3)
  1. DURAGESIC [Suspect]
     Indication: CANCER PAIN
     Dosage: 50 UG/HR, 1 IN 72 HOUR, TRANSDERMAL
     Route: 062
     Dates: start: 20040505, end: 20040506
  2. ANTIHYPERTENSIVE (ANTIHYPERTENSIVE) [Concomitant]
  3. DIURETIC (DIURETIC) [Concomitant]

REACTIONS (6)
  - CARDIAC ARREST [None]
  - CIRCULATORY COLLAPSE [None]
  - DYSPNOEA [None]
  - FEELING ABNORMAL [None]
  - SOMNOLENCE [None]
  - STUPOR [None]
